FAERS Safety Report 21851372 (Version 2)
Quarter: 2023Q1

REPORT INFORMATION
  Report Type: Report from Study
  Country: GR (occurrence: GR)
  Receive Date: 20230112
  Receipt Date: 20230306
  Transmission Date: 20230417
  Serious: Yes (Hospitalization)
  Sender: FDA-Public Use
  Company Number: GR-ABBVIE-4247899

PATIENT
  Age: 73 Year
  Sex: Male

DRUGS (12)
  1. CARBIDOPA\LEVODOPA [Suspect]
     Active Substance: CARBIDOPA\LEVODOPA
     Indication: Parkinson^s disease
     Dosage: MORNING DOSE: 11.0 ML; CONTINUOUS RATE: 3.6 ML/H; EXTRA DOSE: 2.1 ML
     Route: 050
     Dates: start: 20211122, end: 20221215
  2. CARBIDOPA\LEVODOPA [Suspect]
     Active Substance: CARBIDOPA\LEVODOPA
     Dosage: MORNING DOSE: 11.0 ML; CONTINUOUS RATE: 3.8 ML/H; EXTRA DOSE: 2.1 ML
     Route: 050
     Dates: start: 20221215
  3. CARBIDOPA\LEVODOPA [Suspect]
     Active Substance: CARBIDOPA\LEVODOPA
     Route: 050
  4. metoprolol (Lopresol) [Concomitant]
     Indication: Atrial fibrillation
     Dosage: FORM STRENGTH: 100 MILLIGRAM
     Route: 048
  5. metoprolol (Lopresol) [Concomitant]
     Indication: Atrial fibrillation
     Dosage: FORM STRENGTH: 100 MILLIGRAM
     Route: 048
  6. XANAX [Concomitant]
     Active Substance: ALPRAZOLAM
     Indication: Product used for unknown indication
     Dosage: 0.5 MG UNIT DOSE
     Route: 048
  7. Tamsulosin and solifenacin (Vesomni) [Concomitant]
     Indication: Prostatic disorder
     Route: 048
  8. Allopurinol (Zylapour) [Concomitant]
     Indication: Blood uric acid abnormal
     Route: 048
  9. REMERON [Concomitant]
     Active Substance: MIRTAZAPINE
     Indication: Insomnia
     Route: 048
  10. Simvastatin (Lepur) [Concomitant]
     Indication: Atrial fibrillation
     Dosage: FORM STRENGTH: 20 MILLIGRAM
     Route: 048
  11. pramipexole (Mirapexin) [Concomitant]
     Indication: Product used for unknown indication
     Route: 048
  12. XARELTO [Concomitant]
     Active Substance: RIVAROXABAN
     Indication: Coronary artery disease
     Route: 048

REACTIONS (11)
  - Joint injury [Recovered/Resolved]
  - Gait disturbance [Not Recovered/Not Resolved]
  - Contusion [Not Recovered/Not Resolved]
  - Fall [Recovered/Resolved]
  - Osteoarthritis [Unknown]
  - Pain [Not Recovered/Not Resolved]
  - Mobility decreased [Not Recovered/Not Resolved]
  - Refusal of treatment by patient [Recovered/Resolved]
  - Delirium [Recovered/Resolved]
  - Aggression [Recovered/Resolved]
  - Dementia [Recovered/Resolved]

NARRATIVE: CASE EVENT DATE: 20221208
